FAERS Safety Report 7533041-6 (Version None)
Quarter: 2011Q2

REPORT INFORMATION
  Report Type: 
  Country: None (occurrence: None)
  Receive Date: 20110608
  Receipt Date: 20110525
  Transmission Date: 20111010
  Serious: Yes (Other)
  Sender: FDA-Public Use
  Company Number: GR-UCBSA-034080

PATIENT
  Sex: Male

DRUGS (4)
  1. VIMPAT [Suspect]
     Indication: EPILEPSY
     Route: 048
  2. VIMPAT [Suspect]
  3. VIMPAT [Suspect]
     Route: 048
  4. VALPROIC ACID [Concomitant]

REACTIONS (2)
  - PRURITUS [None]
  - HALLUCINATION [None]
